FAERS Safety Report 6048339-0 (Version None)
Quarter: 2009Q1

REPORT INFORMATION
  Report Type: 
  Country: None (occurrence: None)
  Receive Date: 20090123
  Receipt Date: 20090112
  Transmission Date: 20090719
  Serious: Yes (Death, Hospitalization, Other)
  Sender: FDA-Public Use
  Company Number: PL-PFIZER INC-2009155123

PATIENT

DRUGS (9)
  1. SUNITINIB MALATE [Suspect]
     Indication: RENAL CELL CARCINOMA
     Dosage: 50 MG, 1X/DAY
     Route: 048
     Dates: start: 20070127, end: 20090105
  2. ELTROXIN [Concomitant]
     Dosage: UNK
     Route: 048
     Dates: start: 20080313
  3. MILURIT [Concomitant]
     Dosage: UNK
     Route: 048
     Dates: start: 20070406
  4. GASEC [Concomitant]
     Dosage: UNK
     Route: 048
     Dates: start: 20070406
  5. ESSENTIALE FORTE [Concomitant]
     Dosage: UNK
     Route: 048
     Dates: start: 20080312
  6. CYCLONAMINE [Concomitant]
     Dosage: UNK
     Route: 048
     Dates: start: 20070223
  7. FUROSEMIDUM [Concomitant]
     Dosage: UNK
     Route: 048
     Dates: start: 20080804
  8. DIURESIN SR [Concomitant]
     Dosage: UNK
     Route: 048
     Dates: start: 20080321
  9. RAMIPRIL [Concomitant]
     Dosage: UNK
     Route: 048
     Dates: start: 20080321

REACTIONS (3)
  - HEPATIC FAILURE [None]
  - RENAL FAILURE [None]
  - THROMBOCYTOPENIA [None]
